APPROVED DRUG PRODUCT: E.E.S.
Active Ingredient: ERYTHROMYCIN ETHYLSUCCINATE
Strength: EQ 200MG BASE/5ML
Dosage Form/Route: GRANULE;ORAL
Application: N050207 | Product #001 | TE Code: AB
Applicant: CARNEGIE PHARMACEUTICALS LLC
Approved: Approved Prior to Jan 1, 1982 | RLD: Yes | RS: No | Type: RX